FAERS Safety Report 9649709 (Version 2)
Quarter: 2013Q4

REPORT INFORMATION
  Report Type: Report from Study
  Country: CA (occurrence: CA)
  Receive Date: 20131028
  Receipt Date: 20131111
  Transmission Date: 20140711
  Serious: Yes (Other)
  Sender: FDA-Public Use
  Company Number: CA-ABBVIE-13P-028-1160422-00

PATIENT
  Age: 58 Year
  Sex: Female
  Weight: 52 kg

DRUGS (4)
  1. HUMIRA [Suspect]
     Indication: CROHN^S DISEASE
     Dosage: 5 DOSES
     Route: 058
     Dates: start: 20130627, end: 20131017
  2. VENTOLIN [Concomitant]
  3. ADVAIR [Concomitant]
  4. METFORMIN [Concomitant]

REACTIONS (2)
  - Anaphylactic shock [Recovered/Resolved]
  - Bronchitis [Unknown]
